FAERS Safety Report 11499825 (Version 1)
Quarter: 2015Q3

REPORT INFORMATION
  Report Type: Spontaneous
  Country: US (occurrence: None)
  Receive Date: 20150911
  Receipt Date: 20150911
  Transmission Date: 20151125
  Serious: Yes (Hospitalization)
  Sender: FDA-Public Use
  Company Number: None

PATIENT
  Age: 62 Year
  Sex: Female
  Weight: 159 kg

DRUGS (8)
  1. LISINOPRIL. [Concomitant]
     Active Substance: LISINOPRIL
  2. LOSARTAN. [Concomitant]
     Active Substance: LOSARTAN
  3. NORCO [Concomitant]
     Active Substance: ACETAMINOPHEN\HYDROCODONE BITARTRATE
  4. PEPCID [Concomitant]
     Active Substance: FAMOTIDINE
  5. INSULIN [Concomitant]
     Active Substance: INSULIN NOS
  6. INVOKAMET [Suspect]
     Active Substance: CANAGLIFLOZIN\METFORMIN HYDROCHLORIDE
     Indication: DIABETES MELLITUS
     Route: 048
  7. METFORMIN [Concomitant]
     Active Substance: METFORMIN HYDROCHLORIDE
  8. LIPITOR [Concomitant]
     Active Substance: ATORVASTATIN CALCIUM

REACTIONS (7)
  - Musculoskeletal pain [None]
  - Diabetic ketoacidosis [None]
  - Blood creatinine increased [None]
  - Lactic acidosis [None]
  - Dyspepsia [None]
  - Gastrooesophageal reflux disease [None]
  - Fall [None]

NARRATIVE: CASE EVENT DATE: 20150906
